FAERS Safety Report 5340500-3 (Version None)
Quarter: 2007Q2

REPORT INFORMATION
  Report Type: 
  Country: None (occurrence: None)
  Receive Date: 20070531
  Receipt Date: 20070522
  Transmission Date: 20071010
  Serious: Yes (Other)
  Sender: FDA-Public Use
  Company Number: SE-PFIZER INC-2007042065

PATIENT
  Age: 41 Year
  Sex: Female

DRUGS (3)
  1. ZOLOFT [Suspect]
     Indication: DEPRESSION
  2. ZOLOFT [Suspect]
     Indication: FATIGUE
  3. ZOLPIDEM [Concomitant]

REACTIONS (2)
  - PLATELET COUNT INCREASED [None]
  - UTERINE INFLAMMATION [None]
